FAERS Safety Report 7711900-9 (Version None)
Quarter: 2011Q3

REPORT INFORMATION
  Report Type: 
  Country: None (occurrence: None)
  Receive Date: 20110826
  Receipt Date: 20110823
  Transmission Date: 20111222
  Serious: Yes (Hospitalization)
  Sender: FDA-Public Use
  Company Number: US-SANOFI-AVENTIS-2011SA054201

PATIENT
  Age: 59 Year
  Sex: Female

DRUGS (7)
  1. XANAX [Concomitant]
  2. ASPIRIN [Concomitant]
  3. CYMBALTA [Concomitant]
  4. ATENOLOL [Concomitant]
  5. MULTAQ [Suspect]
     Indication: ATRIAL FIBRILLATION
     Route: 048
     Dates: start: 20090101
  6. NITROGLYCERIN [Concomitant]
     Route: 060
  7. METOPROLOL TARTRATE [Suspect]
     Route: 065
     Dates: end: 20110816

REACTIONS (2)
  - PANIC ATTACK [None]
  - ATRIAL FIBRILLATION [None]
